FAERS Safety Report 9333989 (Version 1)
Quarter: 2013Q2

REPORT INFORMATION
  Report Type: Spontaneous
  Country: US (occurrence: US)
  Receive Date: 20130606
  Receipt Date: 20130606
  Transmission Date: 20140414
  Serious: No
  Sender: FDA-Public Use
  Company Number: US-AMGEN-USASP2013011058

PATIENT
  Sex: Female

DRUGS (4)
  1. PROLIA [Suspect]
     Indication: BONE DENSITY DECREASED
     Dosage: UNK
     Dates: start: 20130204
  2. ARIMIDEX [Concomitant]
  3. CALCIUM [Concomitant]
  4. VITAMIN D                          /00107901/ [Concomitant]

REACTIONS (1)
  - Bone pain [Recovering/Resolving]
